FAERS Safety Report 6190401-6 (Version None)
Quarter: 2009Q2

REPORT INFORMATION
  Report Type: 
  Country: None (occurrence: None)
  Receive Date: 20090514
  Receipt Date: 20090504
  Transmission Date: 20091009
  Serious: Yes (Death)
  Sender: FDA-Public Use
  Company Number: B0573828A

PATIENT

DRUGS (1)
  1. BUPROPION HCL [Suspect]

REACTIONS (2)
  - DRUG LEVEL INCREASED [None]
  - OVERDOSE [None]
